FAERS Safety Report 5984206-6 (Version None)
Quarter: 2008Q4

REPORT INFORMATION
  Report Type: 
  Country: None (occurrence: None)
  Receive Date: 20081208
  Receipt Date: 20080903
  Transmission Date: 20090506
  Serious: Yes (Other)
  Sender: FDA-Public Use
  Company Number: US-AMGEN-QUU305672

PATIENT
  Sex: Female

DRUGS (1)
  1. ENBREL [Suspect]
     Indication: PSORIASIS
     Route: 058
     Dates: start: 20070801

REACTIONS (13)
  - INJECTION SITE ERYTHEMA [None]
  - INJECTION SITE HAEMATOMA [None]
  - INJECTION SITE IRRITATION [None]
  - INJECTION SITE PRURITUS [None]
  - INJECTION SITE SWELLING [None]
  - KIDNEY INFECTION [None]
  - OROPHARYNGEAL PAIN [None]
  - PANIC ATTACK [None]
  - PULMONARY THROMBOSIS [None]
  - PYREXIA [None]
  - RASH ERYTHEMATOUS [None]
  - THERMAL BURN [None]
  - URINARY TRACT INFECTION [None]
